FAERS Safety Report 7396218-9 (Version None)
Quarter: 2011Q2

REPORT INFORMATION
  Report Type: 
  Country: None (occurrence: None)
  Receive Date: 20110406
  Receipt Date: 20110401
  Transmission Date: 20111010
  Serious: Yes (Death, Hospitalization, Other)
  Sender: FDA-Public Use
  Company Number: US-ASTELLAS-2011US000798

PATIENT
  Sex: Male
  Weight: 65 kg

DRUGS (3)
  1. EPOGEN [Concomitant]
     Indication: ANAEMIA
     Dosage: 20000 U, UNKNOWN/D
     Route: 065
  2. PROGRAF [Suspect]
     Indication: RENAL TRANSPLANT
     Dosage: 1 MG, UID/QD
     Route: 048
     Dates: start: 20040901, end: 20100101
  3. ZEMPLAR [Concomitant]
     Indication: VITAMIN D
     Dosage: 10 UG, UNKNOWN/D
     Route: 065

REACTIONS (11)
  - EPIDERMOLYSIS [None]
  - BLOOD BILIRUBIN INCREASED [None]
  - CARDIAC FAILURE [None]
  - CARDIAC VALVE DISEASE [None]
  - CARDIAC OPERATION [None]
  - FAILURE TO THRIVE [None]
  - SEPTIC SHOCK [None]
  - OEDEMA PERIPHERAL [None]
  - METABOLIC ENCEPHALOPATHY [None]
  - CELLULITIS [None]
  - LACTIC ACIDOSIS [None]
